FAERS Safety Report 10331396 (Version 2)
Quarter: 2014Q3

REPORT INFORMATION
  Report Type: Spontaneous
  Country: US (occurrence: US)
  Receive Date: 20140722
  Receipt Date: 20140801
  Transmission Date: 20150326
  Serious: No
  Sender: FDA-Public Use
  Company Number: US-PFIZER INC-2014199810

PATIENT
  Sex: Female

DRUGS (1)
  1. NEURONTIN [Suspect]
     Active Substance: GABAPENTIN
     Indication: PAIN
     Dosage: UNK

REACTIONS (1)
  - Drug ineffective [Unknown]
